FAERS Safety Report 24302428 (Version 2)
Quarter: 2024Q4

REPORT INFORMATION
  Report Type: Spontaneous
  Country: JP (occurrence: JP)
  Receive Date: 20240910
  Receipt Date: 20241217
  Transmission Date: 20250115
  Serious: Yes (Other)
  Sender: MERCK
  Company Number: JP-MSD-M2024-34852

PATIENT
  Age: 58 Year
  Sex: Male

DRUGS (2)
  1. KEYTRUDA [Suspect]
     Active Substance: PEMBROLIZUMAB
     Indication: Non-small cell lung cancer stage IV
     Dosage: 200 MILLIGRAM, Q3W
     Route: 041
     Dates: start: 202401, end: 202404
  2. KEYTRUDA [Suspect]
     Active Substance: PEMBROLIZUMAB
     Indication: PD-L1 positive cancer

REACTIONS (1)
  - Cholangitis [Recovering/Resolving]

NARRATIVE: CASE EVENT DATE: 20240426
